FAERS Safety Report 8888779 (Version 1)
Quarter: 2012Q4

REPORT INFORMATION
  Report Type: 
  Country: US (occurrence: US)
  Receive Date: 20121106
  Receipt Date: 20121106
  Transmission Date: 20130627
  Serious: Yes (Other)
  Sender: FDA-Public Use
  Company Number: US-SANOFI-AVENTIS-2012SA080205

PATIENT

DRUGS (3)
  1. CLOPIDOGREL BISULFATE [Suspect]
     Indication: ANTIPLATELET THERAPY
     Route: 048
  2. CLOPIDOGREL BISULFATE [Suspect]
     Indication: ANTIPLATELET THERAPY
     Route: 048
  3. ASPIRIN [Suspect]
     Indication: ANTIPLATELET THERAPY
     Route: 048

REACTIONS (1)
  - transient ischemic attack [Recovered/Resolved]
